FAERS Safety Report 15371789 (Version 2)
Quarter: 2018Q4

REPORT INFORMATION
  Report Type: Spontaneous
  Country: US (occurrence: US)
  Receive Date: 20180911
  Receipt Date: 20181023
  Transmission Date: 20190204
  Serious: No
  Sender: FDA-Public Use
  Company Number: US-VIFOR (INTERNATIONAL) INC.-VIT-2018-08887

PATIENT
  Sex: Female

DRUGS (14)
  1. FUROSEMIDE. [Concomitant]
     Active Substance: FUROSEMIDE
  2. SIMVASTATIN. [Concomitant]
     Active Substance: SIMVASTATIN
  3. CALCIUM [Concomitant]
     Active Substance: CALCIUM
  4. HUMALOG JUNIOR KWIKPEN [Concomitant]
     Active Substance: INSULIN LISPRO
  5. BISOPROLOL FUMARATE. [Concomitant]
     Active Substance: BISOPROLOL FUMARATE
  6. GAS-X INFANT [Concomitant]
  7. LOSARTAN POTASSIUM. [Concomitant]
     Active Substance: LOSARTAN POTASSIUM
  8. DOXAZOSIN MESYLATE. [Concomitant]
     Active Substance: DOXAZOSIN MESYLATE
  9. CRANBERRY CONCENTRATE [Concomitant]
     Active Substance: CRANBERRY CONCENTRATE
  10. GABAPENTIN. [Concomitant]
     Active Substance: GABAPENTIN
  11. FERROUS SULFATE. [Concomitant]
     Active Substance: FERROUS SULFATE
  12. CALCITRIOL. [Concomitant]
     Active Substance: CALCITRIOL
  13. VELTASSA [Suspect]
     Active Substance: PATIROMER
     Indication: HYPERKALAEMIA
     Route: 048
     Dates: start: 20180822
  14. VITAMIN D3 [Concomitant]
     Active Substance: CHOLECALCIFEROL

REACTIONS (3)
  - Malaise [Unknown]
  - Abdominal discomfort [Unknown]
  - Product physical issue [Unknown]

NARRATIVE: CASE EVENT DATE: 2018
